FAERS Safety Report 7395315-1 (Version None)
Quarter: 2011Q1

REPORT INFORMATION
  Report Type: 
  Country: None (occurrence: None)
  Receive Date: 20110331
  Receipt Date: 20110331
  Transmission Date: 20110831
  Serious: Yes (Other)
  Sender: FDA-Public Use
  Company Number: None

PATIENT
  Age: 54 Year
  Sex: Female
  Weight: 87.9978 kg

DRUGS (1)
  1. OXYBUTYNIN [Suspect]
     Indication: INCONTINENCE
     Dates: start: 20110201, end: 20110330

REACTIONS (4)
  - CONSTIPATION [None]
  - TREATMENT NONCOMPLIANCE [None]
  - INCORRECT DOSE ADMINISTERED [None]
  - THERAPEUTIC PRODUCT INEFFECTIVE [None]
